FAERS Safety Report 9199308 (Version 2)
Quarter: 2014Q1

REPORT INFORMATION
  Report Type: Spontaneous
  Country: US (occurrence: US)
  Receive Date: 20130329
  Receipt Date: 20140205
  Transmission Date: 20141002
  Serious: No
  Sender: FDA-Public Use
  Company Number: US-009507513-1303USA012093

PATIENT
  Sex: Male
  Weight: 102.4 kg

DRUGS (1)
  1. PROPECIA [Suspect]
     Indication: ALOPECIA
     Dosage: 1 MG, QD
     Route: 048
     Dates: start: 1998

REACTIONS (28)
  - Cognitive disorder [Not Recovered/Not Resolved]
  - Intentional drug misuse [Unknown]
  - Nasopharyngitis [Unknown]
  - Sinusitis [Unknown]
  - Prostatic disorder [Unknown]
  - Blood testosterone decreased [Unknown]
  - Onychomycosis [Unknown]
  - Rectal haemorrhage [Unknown]
  - Umbilical hernia [Unknown]
  - Dysplastic naevus [Unknown]
  - Chest discomfort [Unknown]
  - Insomnia [Unknown]
  - Rotator cuff syndrome [Unknown]
  - Muscle strain [Unknown]
  - Hyperlipidaemia [Unknown]
  - Cardiac function test abnormal [Unknown]
  - Full blood count abnormal [Unknown]
  - Sinusitis [Unknown]
  - Fatigue [Unknown]
  - Oral herpes [Unknown]
  - Genital herpes [Unknown]
  - Papilloma [Unknown]
  - Anogenital warts [Unknown]
  - Sexual dysfunction [Not Recovered/Not Resolved]
  - Depression [Recovered/Resolved]
  - Erectile dysfunction [Recovered/Resolved]
  - Libido decreased [Unknown]
  - Drug ineffective [Unknown]
